FAERS Safety Report 6831022-9 (Version None)
Quarter: 2010Q3

REPORT INFORMATION
  Report Type: 
  Country: None (occurrence: None)
  Receive Date: 20100712
  Receipt Date: 20100712
  Transmission Date: 20110219
  Serious: Yes (Other)
  Sender: FDA-Public Use
  Company Number: None

PATIENT
  Sex: Male
  Weight: 44.4525 kg

DRUGS (3)
  1. CHILDREN'S TYLENOL PLUS MULTI-SYMPTOM COLD [Suspect]
     Indication: NASOPHARYNGITIS
     Dosage: 2TSP 4-6 HOURS PO
     Route: 048
     Dates: start: 20100101, end: 20100217
  2. CHILDREN'S TYLENOL PLUS MULTI-SYMPTOM COLD [Suspect]
     Indication: PYREXIA
     Dosage: 2TSP 4-6 HOURS PO
     Route: 048
     Dates: start: 20100101, end: 20100217
  3. CHILDREN'S MOTRIN [Suspect]
     Indication: PYREXIA
     Dosage: 3TSP 6-8 HOURS PO
     Route: 048
     Dates: start: 20100101, end: 20100217

REACTIONS (5)
  - BACTERIAL INFECTION [None]
  - DIARRHOEA [None]
  - HEADACHE [None]
  - NAUSEA [None]
  - WEIGHT DECREASED [None]
